FAERS Safety Report 8104485 (Version 3)
Quarter: 2013Q1

REPORT INFORMATION
  Report Type: Spontaneous
  Country: US (occurrence: US)
  Receive Date: 20110824
  Receipt Date: 20130131
  Transmission Date: 20140127
  Serious: No
  Sender: FDA-Public Use
  Company Number: US-BAYER-2011-000587

PATIENT
  Age: 36 Year
  Sex: Female

DRUGS (2)
  1. MIRENA [Suspect]
     Indication: CONTRACEPTION
     Dosage: 20 MCG/24HR, CONT
     Dates: end: 201301
  2. MIRENA [Suspect]
     Indication: CONTRACEPTION

REACTIONS (3)
  - Menorrhagia [None]
  - Device expulsion [None]
  - Menorrhagia [None]
